FAERS Safety Report 5721703-2 (Version None)
Quarter: 2008Q2

REPORT INFORMATION
  Report Type: 
  Country: None (occurrence: None)
  Receive Date: 20080429
  Receipt Date: 20070430
  Transmission Date: 20081010
  Serious: No
  Sender: FDA-Public Use
  Company Number: US-ASTRAZENECA-2007UW08821

PATIENT
  Age: 57 Year
  Sex: Female
  Weight: 54.4 kg

DRUGS (2)
  1. NEXIUM [Suspect]
     Indication: GASTROOESOPHAGEAL REFLUX DISEASE
     Route: 048
  2. AMBIEN CR [Concomitant]

REACTIONS (4)
  - BURNING SENSATION [None]
  - DIARRHOEA [None]
  - FLATULENCE [None]
  - MUSCULOSKELETAL PAIN [None]
